FAERS Safety Report 9484330 (Version 1)
Quarter: 2013Q3

REPORT INFORMATION
  Report Type: Spontaneous
  Country: US (occurrence: US)
  Receive Date: 20130828
  Receipt Date: 20130828
  Transmission Date: 20140515
  Serious: Yes (Other)
  Sender: FDA-Public Use
  Company Number: US-AMGEN-KDL403267

PATIENT
  Age: 38 Year
  Sex: Male

DRUGS (1)
  1. ENBREL [Suspect]
     Indication: PSORIASIS
     Dosage: 50 MG, UNK
     Route: 058

REACTIONS (4)
  - Uveitis [Not Recovered/Not Resolved]
  - Pupils unequal [Not Recovered/Not Resolved]
  - Psoriatic arthropathy [Unknown]
  - Injection site pain [Recovered/Resolved]
